FAERS Safety Report 15296493 (Version 3)
Quarter: 2018Q3

REPORT INFORMATION
  Report Type: Spontaneous
  Country: PL (occurrence: PL)
  Receive Date: 20180820
  Receipt Date: 20180919
  Transmission Date: 20181010
  Serious: Yes (Death, Hospitalization)
  Sender: FDA-Public Use
  Company Number: PL-PFIZER INC-2018328830

PATIENT
  Age: 63 Year
  Sex: Female

DRUGS (3)
  1. AMPHOTERICIN B. [Suspect]
     Active Substance: AMPHOTERICIN B
     Indication: FUNGAL ENDOCARDITIS
     Dosage: TREATMENT WITH INTRAVENOUS VORICONAZOLE,
     Route: 042
  2. MICAFUNGIN [Suspect]
     Active Substance: MICAFUNGIN
     Indication: FUNGAL ENDOCARDITIS
     Dosage: TREATMENT WITH INTRAVENOUS VORICONAZOLE,
     Route: 042
  3. VORICONAZOLE. [Suspect]
     Active Substance: VORICONAZOLE
     Indication: FUNGAL ENDOCARDITIS
     Dosage: TREATMENT WITH INTRAVENOUS VORICONAZOLE,
     Route: 042

REACTIONS (2)
  - Multiple organ dysfunction syndrome [Fatal]
  - Drug ineffective [Fatal]
